FAERS Safety Report 8277416-9 (Version None)
Quarter: 2012Q2

REPORT INFORMATION
  Report Type: 
  Country: None (occurrence: None)
  Receive Date: 20120412
  Receipt Date: 20120403
  Transmission Date: 20120825
  Serious: Yes (Other)
  Sender: FDA-Public Use
  Company Number: GR-PFIZER INC-2012084072

PATIENT
  Age: 8 Year
  Sex: Male

DRUGS (3)
  1. PREDNISOLONE [Concomitant]
  2. RANITIDINE [Concomitant]
  3. METHOTREXATE SODIUM [Suspect]
     Indication: RHEUMATOID ARTHRITIS
     Dosage: 2.5 MG (EVERY WEEKEND)
     Route: 048
     Dates: start: 20000101

REACTIONS (1)
  - MENTAL RETARDATION [None]
